FAERS Safety Report 23543697 (Version 1)
Quarter: 2024Q1

REPORT INFORMATION
  Report Type: Spontaneous
  Country: US (occurrence: US)
  Receive Date: 20240220
  Receipt Date: 20240220
  Transmission Date: 20240410
  Serious: No
  Sender: FDA-Public Use
  Company Number: US-ASTELLAS-2024US001179

PATIENT
  Age: 57 Year
  Sex: Female

DRUGS (1)
  1. VEOZAH [Suspect]
     Active Substance: FEZOLINETANT
     Indication: Product used for unknown indication
     Dosage: 2 DF, ONCE DAILY (MORNING)
     Route: 065

REACTIONS (2)
  - Diarrhoea [Unknown]
  - Overdose [Unknown]
